FAERS Safety Report 8313075-4 (Version None)
Quarter: 2012Q2

REPORT INFORMATION
  Report Type: 
  Country: None (occurrence: None)
  Receive Date: 20120426
  Receipt Date: 20120423
  Transmission Date: 20120825
  Serious: Yes (Other)
  Sender: FDA-Public Use
  Company Number: ES-PFIZER INC-2012100969

PATIENT
  Age: 30 Year
  Sex: Male

DRUGS (1)
  1. VARENICLINE TARTRATE [Suspect]
     Indication: SMOKING CESSATION THERAPY
     Dosage: UNK
     Dates: start: 20120415

REACTIONS (5)
  - DYSGRAPHIA [None]
  - DIZZINESS [None]
  - FEELING ABNORMAL [None]
  - DISORIENTATION [None]
  - NERVOUSNESS [None]
